FAERS Safety Report 5037367-X (Version None)
Quarter: 2006Q2

REPORT INFORMATION
  Report Type: 
  Country: None (occurrence: None)
  Receive Date: 20060605
  Receipt Date: 20060330
  Transmission Date: 20061013
  Serious: No
  Sender: FDA-Public Use
  Company Number: IND-AE-06-SAN-017

PATIENT
  Age: 59 Year
  Sex: Female

DRUGS (7)
  1. SANCTURA [Suspect]
     Indication: HYPERTONIC BLADDER
     Dosage: 20 MG BID ORAL
     Route: 048
  2. PLAVIX [Concomitant]
  3. INDERAL [Concomitant]
  4. CYMBALTA [Concomitant]
  5. KLONOPIN [Concomitant]
  6. TRAZODONE HCL [Concomitant]
  7. LAMICTAL [Concomitant]

REACTIONS (1)
  - CONSTIPATION [None]
